FAERS Safety Report 17302417 (Version 14)
Quarter: 2023Q1

REPORT INFORMATION
  Report Type: Report from Study
  Country: GB (occurrence: GB)
  Receive Date: 20200122
  Receipt Date: 20230106
  Transmission Date: 20230418
  Serious: Yes (Other)
  Sender: FDA-Public Use
  Company Number: GB-EMA-DD-20200107-KUMARSINGH_A-094208

PATIENT
  Age: 53 Year
  Sex: Female

DRUGS (22)
  1. PREGABALIN [Suspect]
     Active Substance: PREGABALIN
     Indication: Sedation
     Dosage: UNK (ROUTE: OTHER)
     Route: 065
  2. PREGABALIN [Suspect]
     Active Substance: PREGABALIN
     Indication: Neuropathy peripheral
     Dosage: UNK
     Route: 065
  3. PREGABALIN [Suspect]
     Active Substance: PREGABALIN
     Dosage: UNK
     Route: 065
  4. PREGABALIN [Suspect]
     Active Substance: PREGABALIN
     Dosage: UNK
     Route: 065
  5. PREGABALIN [Suspect]
     Active Substance: PREGABALIN
     Dosage: UNK
     Route: 065
  6. MAVENCLAD [Suspect]
     Active Substance: CLADRIBINE
     Indication: Multiple sclerosis
     Dosage: UNK, FIRST YEAR 1ST WEEK 2 TABLETS 10MG,1 TABLET
     Route: 048
     Dates: start: 20181001
  7. MAVENCLAD [Suspect]
     Active Substance: CLADRIBINE
     Dosage: UNK 1ST YR 2 TAB ON DAY 1 AND 1 TAB ON DAY 2 TO 5
     Route: 048
     Dates: start: 20181001, end: 20181011
  8. MAVENCLAD [Suspect]
     Active Substance: CLADRIBINE
     Dosage: UNK, 1ST YR 1ST WEEK 2 TABS (10MG)ON DAY,1 TABLET
     Route: 048
     Dates: start: 20181001, end: 20181011
  9. MAVENCLAD [Suspect]
     Active Substance: CLADRIBINE
     Dosage: UNK 1ST YR WK 2 TAB OF 10MG 1 TAB ON DAY 2 TO 5
     Route: 048
     Dates: start: 20181029
  10. MAVENCLAD [Suspect]
     Active Substance: CLADRIBINE
     Dosage: UNK, 1ST YR 2ND WK 2 TAB 10MG DAY 1, 1 TABLET DAY
     Route: 048
  11. MAVENCLAD [Suspect]
     Active Substance: CLADRIBINE
     Dosage: UNK, 1ST YR 2ND WEEK 2 TAB 10MG 1 TABLET ON DAY
     Route: 048
     Dates: start: 20181029, end: 201811
  12. MAVENCLAD [Suspect]
     Active Substance: CLADRIBINE
     Dosage: UNK 1ST YR 2ND WEEK 2 TAB10MG DAY 1, 1 TABLET
     Route: 048
     Dates: start: 20181029
  13. CLONAZEPAM [Concomitant]
     Active Substance: CLONAZEPAM
     Indication: Muscle spasms
     Dosage: 1 DOSAGE FORM, PRN (FREQUENCY - 1 ,AS NECESSARY)
     Route: 065
  14. CLONAZEPAM [Concomitant]
     Active Substance: CLONAZEPAM
     Dosage: UNK, PRN (ROUTE: OTHER)
     Route: 065
  15. CLONAZEPAM [Concomitant]
     Active Substance: CLONAZEPAM
     Dosage: UNK, PRN (ROUTE: OTHER)
     Route: 065
  16. CLONAZEPAM [Concomitant]
     Active Substance: CLONAZEPAM
     Dosage: UNK, PRN
     Route: 065
  17. CLONAZEPAM [Concomitant]
     Active Substance: CLONAZEPAM
     Dosage: UNK, PRN
     Route: 065
  18. FLUTICASONE FUROATE [Concomitant]
     Active Substance: FLUTICASONE FUROATE
     Indication: Product used for unknown indication
     Dosage: UNK
     Route: 045
  19. FLUTICASONE FUROATE [Concomitant]
     Active Substance: FLUTICASONE FUROATE
     Dosage: UNK (ROUTE: OTHER)
     Route: 065
  20. FLUTICASONE FUROATE [Concomitant]
     Active Substance: FLUTICASONE FUROATE
     Dosage: UNK (ROUTE: OTHER)
     Route: 065
  21. FLUTICASONE FUROATE [Concomitant]
     Active Substance: FLUTICASONE FUROATE
     Dosage: UNK
     Route: 065
  22. FLUTICASONE FUROATE [Concomitant]
     Active Substance: FLUTICASONE FUROATE
     Dosage: UNK
     Route: 065

REACTIONS (14)
  - Multiple sclerosis [Not Recovered/Not Resolved]
  - Neuropathy peripheral [Not Recovered/Not Resolved]
  - Multiple sclerosis pseudo relapse [Not Recovered/Not Resolved]
  - Fine motor skill dysfunction [Not Recovered/Not Resolved]
  - Sensory loss [Not Recovered/Not Resolved]
  - Stress [Unknown]
  - Blood pressure fluctuation [Not Recovered/Not Resolved]
  - Weight decreased [Unknown]
  - Hangover [Unknown]
  - Feeling abnormal [Not Recovered/Not Resolved]
  - Balance disorder [Unknown]
  - Fatigue [Not Recovered/Not Resolved]
  - Insomnia [Not Recovered/Not Resolved]
  - Dizziness [Not Recovered/Not Resolved]

NARRATIVE: CASE EVENT DATE: 20181001
